FAERS Safety Report 17182007 (Version 1)
Quarter: 2019Q4

REPORT INFORMATION
  Report Type: Spontaneous
  Country: CA (occurrence: CA)
  Receive Date: 20191219
  Receipt Date: 20191219
  Transmission Date: 20200122
  Serious: Yes (Hospitalization, Other)
  Sender: FDA-Public Use
  Company Number: CA-PFIZER INC-2014061885

PATIENT
  Age: 40 Year
  Sex: Male
  Weight: 80 kg

DRUGS (7)
  1. NORTRIPTYLINE [Suspect]
     Active Substance: NORTRIPTYLINE
     Indication: ANALGESIC THERAPY
     Dosage: 10 MG, 1X/DAY
     Route: 048
  2. PREGABALIN. [Suspect]
     Active Substance: PREGABALIN
     Indication: ANALGESIC THERAPY
     Dosage: 25 MG, 2X/DAY
     Route: 048
  3. TRAMADOL HYDROCHLORIDE. [Suspect]
     Active Substance: TRAMADOL HYDROCHLORIDE
     Indication: ANALGESIC THERAPY
     Dosage: 25 MG, 2X/DAY EVERY 12 HOURS
     Route: 048
  4. TRAMADOL HYDROCHLORIDE. [Suspect]
     Active Substance: TRAMADOL HYDROCHLORIDE
     Dosage: 25 MG, AS NEEDED
     Route: 048
  5. HYDROMORPHONE HYDROCHLORIDE. [Suspect]
     Active Substance: HYDROMORPHONE HYDROCHLORIDE
     Indication: BREAKTHROUGH PAIN
     Dosage: 0.5 MG, UNK
     Route: 058
  6. PREGABALIN. [Suspect]
     Active Substance: PREGABALIN
     Dosage: 50 MG, 1X/DAY QAM
     Route: 048
  7. ACETAMINOPHEN. [Suspect]
     Active Substance: ACETAMINOPHEN
     Indication: ANALGESIC THERAPY
     Dosage: 650 MG, EVERY 4 HRS
     Route: 048

REACTIONS (9)
  - Infection [Unknown]
  - Inadequate analgesia [Unknown]
  - Pain [Unknown]
  - Nausea [Unknown]
  - Sedation [Unknown]
  - Treatment noncompliance [Unknown]
  - Vomiting [Unknown]
  - Hallucination [Unknown]
  - Drug hypersensitivity [Unknown]
